FAERS Safety Report 23351439 (Version 1)
Quarter: 2023Q4

REPORT INFORMATION
  Report Type: Spontaneous
  Country: US (occurrence: US)
  Receive Date: 20231229
  Receipt Date: 20231229
  Transmission Date: 20240110
  Serious: Yes (Other)
  Sender: FDA-Public Use
  Company Number: US-ALCON LABORATORIES-ALC2023US005806

PATIENT
  Age: 55 Year
  Sex: Female

DRUGS (1)
  1. SYSTANE COMPLETE PF [Suspect]
     Active Substance: PROPYLENE GLYCOL
     Indication: Product used for unknown indication
     Dosage: 1 DROP EACH EYE
     Route: 047

REACTIONS (3)
  - Product contamination microbial [Unknown]
  - Ocular hyperaemia [Recovered/Resolved]
  - Eye irritation [Recovered/Resolved]

NARRATIVE: CASE EVENT DATE: 20231221
